FAERS Safety Report 23845370 (Version 5)
Quarter: 2025Q1

REPORT INFORMATION
  Report Type: Other
  Country: US (occurrence: US)
  Receive Date: 20240511
  Receipt Date: 20250321
  Transmission Date: 20250409
  Serious: Yes (Other)
  Sender: TRAVERE THERAPEUTICS
  Company Number: US-TRAVERE-2024TVT00350

PATIENT
  Age: 61 Year
  Sex: Male

DRUGS (1)
  1. FILSPARI [Suspect]
     Active Substance: SPARSENTAN
     Indication: IgA nephropathy
     Route: 048
     Dates: start: 20231205, end: 20250128

REACTIONS (4)
  - Glomerular filtration rate decreased [None]
  - Cholelithiasis [Unknown]
  - Blood potassium increased [None]
  - Wrong technique in product usage process [Unknown]

NARRATIVE: CASE EVENT DATE: 20250128
